FAERS Safety Report 7161344-6 (Version None)
Quarter: 2010Q4

REPORT INFORMATION
  Report Type: 
  Country: None (occurrence: None)
  Receive Date: 20101210
  Receipt Date: 20101210
  Transmission Date: 20110411
  Serious: Yes (Other)
  Sender: FDA-Public Use
  Company Number: None

PATIENT
  Age: 49 Year
  Sex: Female
  Weight: 73.0291 kg

DRUGS (1)
  1. NAPROXEN [Suspect]
     Indication: ANTIINFLAMMATORY THERAPY
     Dosage: ONE TWICE A DAY
     Dates: start: 20101129, end: 20101205

REACTIONS (7)
  - ABDOMINAL PAIN UPPER [None]
  - DIZZINESS [None]
  - DYSPHAGIA [None]
  - HEADACHE [None]
  - NASAL CONGESTION [None]
  - PHARYNGEAL OEDEMA [None]
  - WHEEZING [None]
